FAERS Safety Report 4710185-5 (Version None)
Quarter: 2005Q3

REPORT INFORMATION
  Report Type: 
  Country: None (occurrence: None)
  Receive Date: 20050708
  Receipt Date: 20050708
  Transmission Date: 20060218
  Serious: No
  Sender: FDA-Public Use
  Company Number: None

PATIENT
  Age: 32 Year
  Sex: Female
  Weight: 54.4316 kg

DRUGS (2)
  1. MALARONE [Suspect]
     Dosage: 1 QD
     Dates: start: 20010101, end: 20050101
  2. B. CONTROL (OC) [Concomitant]

REACTIONS (1)
  - HERPES SIMPLEX [None]
